FAERS Safety Report 10211379 (Version 1)
Quarter: 2014Q2

REPORT INFORMATION
  Report Type: Spontaneous
  Country: US (occurrence: None)
  Receive Date: 20140530
  Receipt Date: 20140530
  Transmission Date: 20141212
  Serious: Yes (Other)
  Sender: FDA-Public Use
  Company Number: None

PATIENT
  Age: 66 Year
  Sex: Female
  Weight: 52.16 kg

DRUGS (21)
  1. ATOVAQUONE AND PROGUANIL HCL [Suspect]
     Indication: MALARIA PROPHYLAXIS
     Dosage: 30 PILLS
     Route: 048
     Dates: start: 20140426, end: 20140509
  2. THEOPHYLLINE [Concomitant]
  3. INHALER, FLOVENT (FLUTICASONE PROPIONATE) [Concomitant]
  4. INHALER, ALBUTEROL [Concomitant]
  5. IPRATROPIUM BROMIDE [Concomitant]
  6. ALBUTEROL SULFATE [Concomitant]
  7. PREDNISONE [Concomitant]
  8. PAROXETINE [Concomitant]
  9. GENERIC PAXIL 20MG [Concomitant]
  10. RALOXIFENE [Concomitant]
  11. GENERIC EVISTA [Concomitant]
  12. CLOBETISOL OINTMENT [Concomitant]
  13. TRIAMCINOLONE ACETONIDE OINTMENT USP, 0.1% [Concomitant]
  14. ESTRACE CREAM [Concomitant]
  15. CALCIUM [Concomitant]
  16. VITAMIN D [Concomitant]
  17. VITAMIN B [Concomitant]
  18. CINNAMON [Concomitant]
  19. BABY ASPIRIN [Concomitant]
  20. MILK THISTLE [Concomitant]
  21. WELLNESS BRAND MULTIVITAMIN/MINERAL [Concomitant]

REACTIONS (5)
  - Angioedema [None]
  - Pulmonary congestion [None]
  - Cough [None]
  - Rash [None]
  - Hypersensitivity [None]
